FAERS Safety Report 4545410-7 (Version None)
Quarter: 2005Q1

REPORT INFORMATION
  Report Type: 
  Country: None (occurrence: None)
  Receive Date: 20050103
  Receipt Date: 20041223
  Transmission Date: 20050727
  Serious: Yes (Death)
  Sender: FDA-Public Use
  Company Number: HQWYE173123DEC04

PATIENT
  Age: 48 Year
  Sex: Female

DRUGS (3)
  1. CORDARONE [Suspect]
     Dosage: 150 MG INTRAVENOUS
     Route: 042
     Dates: start: 20041001
  2. LIDOCAINE [Concomitant]
  3. PERINDOPRIL (PERINDOPRIL) [Concomitant]

REACTIONS (1)
  - DRUG LEVEL ABOVE THERAPEUTIC [None]
